FAERS Safety Report 7999077-6 (Version None)
Quarter: 2011Q4

REPORT INFORMATION
  Report Type: 
  Country: None (occurrence: None)
  Receive Date: 20111221
  Receipt Date: 20111216
  Transmission Date: 20120403
  Serious: Yes (Hospitalization, Other)
  Sender: FDA-Public Use
  Company Number: BR-PFIZER INC-2011307365

PATIENT
  Age: 30 Year
  Sex: Male
  Weight: 90 kg

DRUGS (3)
  1. METFORMIN HYDROCHLORIDE [Suspect]
     Indication: BLOOD GLUCOSE
     Dosage: UNK
     Dates: start: 20111001, end: 20111212
  2. LIPITOR [Suspect]
     Indication: BLOOD CHOLESTEROL INCREASED
     Dosage: 20 MG, 1X/DAY
     Route: 048
     Dates: start: 20110901, end: 20111212
  3. DIOVAN [Suspect]
     Indication: BLOOD CHOLESTEROL INCREASED
     Dosage: UNK
     Dates: start: 20111001, end: 20111212

REACTIONS (3)
  - MALAISE [None]
  - ASTHENIA [None]
  - DRUG INTERACTION [None]
